FAERS Safety Report 5202538-6 (Version None)
Quarter: 2007Q1

REPORT INFORMATION
  Report Type: 
  Country: None (occurrence: None)
  Receive Date: 20070109
  Receipt Date: 20061228
  Transmission Date: 20070707
  Serious: Yes (Other)
  Sender: FDA-Public Use
  Company Number: JP-PFIZER INC-2006100164

PATIENT
  Sex: Female

DRUGS (12)
  1. DOSTINEX [Suspect]
     Indication: DEPRESSIVE SYMPTOM
     Route: 048
  2. VALPROIC ACID [Concomitant]
  3. MILNACIPRAN HYDROCHLORIDE [Concomitant]
  4. TRAZODONE HCL [Concomitant]
  5. SELENICA-R [Concomitant]
     Route: 048
  6. TOLEDOMIN [Concomitant]
     Route: 048
  7. RESLIN [Concomitant]
     Route: 048
     Dates: start: 20020821
  8. ROHYPNOL [Concomitant]
     Route: 048
  9. NEUQUINON [Concomitant]
     Route: 048
     Dates: start: 20020812
  10. PERSANTIN [Concomitant]
     Route: 048
  11. NIVADIL [Concomitant]
     Route: 048
     Dates: start: 20020812
  12. ADONA [Concomitant]
     Route: 048

REACTIONS (4)
  - AFFECT LABILITY [None]
  - DEPRESSION [None]
  - DISINHIBITION [None]
  - IRRITABILITY [None]
